FAERS Safety Report 22094458 (Version 2)
Quarter: 2023Q1

REPORT INFORMATION
  Report Type: Report from Study
  Country: AR (occurrence: None)
  Receive Date: 20230314
  Receipt Date: 20230323
  Transmission Date: 20230418
  Serious: Yes (Hospitalization, Other)
  Sender: FDA-Public Use
  Company Number: AR-Merck Healthcare KGaA-9387583

PATIENT
  Age: 46 Year
  Sex: Female

DRUGS (1)
  1. REBIF [Suspect]
     Active Substance: INTERFERON BETA-1A
     Indication: Multiple sclerosis
     Dosage: REBIF PREFILLED SYRINGE
     Route: 058
     Dates: start: 20230103, end: 20230224

REACTIONS (13)
  - Blood test abnormal [Unknown]
  - Platelet count decreased [Recovered/Resolved]
  - Headache [Unknown]
  - White blood cell count decreased [Recovered/Resolved]
  - Pain [Unknown]
  - Cough [Unknown]
  - Urinary tract infection [Unknown]
  - Viral infection [Unknown]
  - Bacterial infection [Unknown]
  - Muscle spasms [Unknown]
  - Chest pain [Unknown]
  - Product administration interrupted [Unknown]
  - Drug delivery system issue [Unknown]

NARRATIVE: CASE EVENT DATE: 20230218
